FAERS Safety Report 8078664-3 (Version None)
Quarter: 2012Q1

REPORT INFORMATION
  Report Type: 
  Country: None (occurrence: None)
  Receive Date: 20120124
  Receipt Date: 20120111
  Transmission Date: 20120608
  Serious: Yes (Life-Threatening, Disabling)
  Sender: FDA-Public Use
  Company Number: 1000026062

PATIENT
  Age: 87 Year
  Sex: Male

DRUGS (3)
  1. MEMANTINE HYDROCHLORIDE [Suspect]
     Indication: DEMENTIA ALZHEIMER'S TYPE
     Dosage: ORAL ; INCREASED DOSE,ORAL ; 20 MG (20 MG,1 IN 1 D),ORAL
     Route: 048
     Dates: start: 20110101, end: 20110101
  2. MEMANTINE HYDROCHLORIDE [Suspect]
     Indication: DEMENTIA ALZHEIMER'S TYPE
     Dosage: ORAL ; INCREASED DOSE,ORAL ; 20 MG (20 MG,1 IN 1 D),ORAL
     Route: 048
     Dates: start: 20110810, end: 20110101
  3. MEMANTINE HYDROCHLORIDE [Suspect]
     Indication: DEMENTIA ALZHEIMER'S TYPE
     Dosage: ORAL ; INCREASED DOSE,ORAL ; 20 MG (20 MG,1 IN 1 D),ORAL
     Route: 048
     Dates: start: 20111027, end: 20111103

REACTIONS (7)
  - PNEUMONIA ASPIRATION [None]
  - BLOOD CREATININE INCREASED [None]
  - ATRIOVENTRICULAR BLOCK COMPLETE [None]
  - BLOOD UREA INCREASED [None]
  - C-REACTIVE PROTEIN INCREASED [None]
  - CEREBRAL INFARCTION [None]
  - FALL [None]
